FAERS Safety Report 4519368-0 (Version None)
Quarter: 2004Q4

REPORT INFORMATION
  Report Type: 
  Country: None (occurrence: None)
  Receive Date: 20041202
  Receipt Date: 20041119
  Transmission Date: 20050328
  Serious: Yes (Other)
  Sender: FDA-Public Use
  Company Number: HD-ADVR-392

PATIENT
  Age: 45 Year
  Sex: Female

DRUGS (1)
  1. TRI-LUMA [Suspect]
     Indication: CHLOASMA
     Dosage: QD, TOPICAL
     Route: 061
     Dates: start: 20030805, end: 20030806

REACTIONS (3)
  - DYSPNOEA [None]
  - LOCAL SWELLING [None]
  - SWOLLEN TONGUE [None]
